FAERS Safety Report 10184318 (Version 1)
Quarter: 2014Q2

REPORT INFORMATION
  Report Type: Spontaneous
  Country: LB (occurrence: LB)
  Receive Date: 20140520
  Receipt Date: 20140520
  Transmission Date: 20141212
  Serious: Yes (Hospitalization)
  Sender: FDA-Public Use
  Company Number: PHHY2014LB058846

PATIENT
  Age: 29 Year
  Sex: Male

DRUGS (2)
  1. THIAMAZOLE [Suspect]
     Indication: BASEDOW^S DISEASE
     Dosage: 20 MG/DAY
  2. PROPRANOLOL [Concomitant]
     Indication: BASEDOW^S DISEASE
     Dosage: 60 MG/DAY

REACTIONS (9)
  - Myositis [Recovered/Resolved]
  - Pyrexia [Recovered/Resolved]
  - Eosinophilia [Recovered/Resolved]
  - Erythema [Recovered/Resolved]
  - Blood creatine phosphokinase increased [Recovered/Resolved]
  - Muscle swelling [Recovered/Resolved]
  - Fasciitis [Recovered/Resolved]
  - Liver function test abnormal [Recovered/Resolved]
  - Hepatitis [Recovered/Resolved]
